FAERS Safety Report 16777408 (Version 1)
Quarter: 2019Q3

REPORT INFORMATION
  Report Type: Spontaneous
  Country: FR (occurrence: FR)
  Receive Date: 20190905
  Receipt Date: 20190905
  Transmission Date: 20191005
  Serious: Yes (Other)
  Sender: FDA-Public Use
  Company Number: FR-MYLANLABS-2019M1083061

PATIENT
  Age: 77 Year
  Sex: Male

DRUGS (3)
  1. GEMCITABINE. [Suspect]
     Active Substance: GEMCITABINE
     Indication: CENTRAL NERVOUS SYSTEM LYMPHOMA
     Dosage: 1000 MILLIGRAM/SQ. METER
     Route: 065
  2. RITUXIMAB. [Suspect]
     Active Substance: RITUXIMAB
     Indication: CENTRAL NERVOUS SYSTEM LYMPHOMA
     Dosage: 375 MILLIGRAM/SQ. METER
     Route: 042
  3. OXALIPLATIN. [Suspect]
     Active Substance: OXALIPLATIN
     Indication: CENTRAL NERVOUS SYSTEM LYMPHOMA
     Dosage: 100 MILLIGRAM/KILOGRAM
     Route: 065

REACTIONS (3)
  - Neutropenia [Unknown]
  - Prostatitis [Unknown]
  - Lymphopenia [Unknown]
